FAERS Safety Report 22653703 (Version 1)
Quarter: 2023Q2

REPORT INFORMATION
  Report Type: Spontaneous
  Country: JP (occurrence: JP)
  Receive Date: 20230629
  Receipt Date: 20230629
  Transmission Date: 20230722
  Serious: Yes (Hospitalization, Other)
  Sender: FDA-Public Use
  Company Number: JP-002147023-NVSJ2023JP010402

PATIENT
  Age: 70 Year
  Sex: Female
  Weight: 50.9 kg

DRUGS (5)
  1. AFINITOR [Suspect]
     Active Substance: EVEROLIMUS
     Indication: Breast cancer
     Dosage: 5 MG, QD
     Route: 048
     Dates: start: 20230404, end: 20230413
  2. AFINITOR [Suspect]
     Active Substance: EVEROLIMUS
     Dosage: 5 MG, BID
     Route: 048
     Dates: start: 20230414, end: 20230425
  3. EXEMESTANE [Concomitant]
     Active Substance: EXEMESTANE
     Indication: Breast cancer
     Dosage: UNK
     Route: 048
     Dates: start: 20230404, end: 20230427
  4. LOXOPROFEN [Concomitant]
     Active Substance: LOXOPROFEN
     Indication: Pain
     Dosage: UNK
     Route: 048
     Dates: start: 20221227
  5. TEPRENONE [Concomitant]
     Active Substance: TEPRENONE
     Indication: Prophylaxis
     Dosage: UNK
     Route: 048
     Dates: start: 20221227

REACTIONS (7)
  - Diarrhoea [Recovered/Resolved]
  - Vomiting [Unknown]
  - Dizziness [Unknown]
  - Blood pressure diastolic increased [Unknown]
  - Mucous stools [Unknown]
  - Fluid intake reduced [Unknown]
  - Hypophagia [Unknown]

NARRATIVE: CASE EVENT DATE: 20230422
